FAERS Safety Report 12340510 (Version 1)
Quarter: 2016Q2

REPORT INFORMATION
  Report Type: Spontaneous
  Country: US (occurrence: None)
  Receive Date: 20160505
  Receipt Date: 20160505
  Transmission Date: 20160815
  Serious: Yes (Life-Threatening, Hospitalization, Disabling)
  Sender: FDA-Public Use
  Company Number: None

PATIENT
  Age: 53 Year
  Sex: Male
  Weight: 74.84 kg

DRUGS (7)
  1. LEXAPRO [Concomitant]
     Active Substance: ESCITALOPRAM OXALATE
  2. AVAPRO [Concomitant]
     Active Substance: IRBESARTAN
  3. VALPROIC ACID. [Concomitant]
     Active Substance: VALPROIC ACID
  4. KEPPRA [Concomitant]
     Active Substance: LEVETIRACETAM
  5. VITAMIN D3 [Concomitant]
     Active Substance: CHOLECALCIFEROL
  6. TRAMADOL, 50 MG [Suspect]
     Active Substance: TRAMADOL
     Indication: INSOMNIA
     Route: 048
     Dates: start: 20141013, end: 20141018
  7. MULTI VITAMIN [Concomitant]
     Active Substance: VITAMINS

REACTIONS (1)
  - Drug dispensing error [None]

NARRATIVE: CASE EVENT DATE: 20141013
